FAERS Safety Report 20077990 (Version 1)
Quarter: 2021Q4

REPORT INFORMATION
  Report Type: Spontaneous
  Country: FR (occurrence: FR)
  Receive Date: 20211117
  Receipt Date: 20211117
  Transmission Date: 20220303
  Serious: Yes (Disabling, Congenital Anomaly)
  Sender: FDA-Public Use
  Company Number: FR-ABBVIE-21K-056-4160097-00

PATIENT
  Sex: Female

DRUGS (1)
  1. VALPROATE SODIUM [Suspect]
     Active Substance: VALPROATE SODIUM
     Indication: Maternal exposure timing unspecified
     Route: 064

REACTIONS (9)
  - Disturbance in attention [Recovered/Resolved with Sequelae]
  - Behaviour disorder [Recovered/Resolved with Sequelae]
  - Congenital eyelid malformation [Recovered/Resolved with Sequelae]
  - Congenital foot malformation [Recovered/Resolved with Sequelae]
  - Intellectual disability [Recovered/Resolved with Sequelae]
  - Dysmorphism [Recovered/Resolved with Sequelae]
  - Auditory disorder [Recovered/Resolved with Sequelae]
  - Dysgraphia [Recovered/Resolved with Sequelae]
  - Foetal exposure during pregnancy [Unknown]

NARRATIVE: CASE EVENT DATE: 20030726
